FAERS Safety Report 23354696 (Version 2)
Quarter: 2024Q1

REPORT INFORMATION
  Report Type: Spontaneous
  Country: US (occurrence: US)
  Receive Date: 20240101
  Receipt Date: 20240129
  Transmission Date: 20240409
  Serious: No
  Sender: FDA-Public Use
  Company Number: US-BoehringerIngelheim-2024-BI-000010

PATIENT

DRUGS (1)
  1. OFEV [Suspect]
     Active Substance: NINTEDANIB
     Indication: Product used for unknown indication

REACTIONS (6)
  - Hernia [Unknown]
  - Depression [Unknown]
  - Illness [Unknown]
  - Cough [Unknown]
  - Dyspnoea [Unknown]
  - General physical health deterioration [Unknown]
